FAERS Safety Report 5112626-0 (Version None)
Quarter: 2006Q3

REPORT INFORMATION
  Report Type: 
  Country: None (occurrence: None)
  Receive Date: 20060922
  Receipt Date: 20060913
  Transmission Date: 20061208
  Serious: Yes (Other)
  Sender: FDA-Public Use
  Company Number: US-JNJFOC-20060605632

PATIENT
  Sex: Female
  Weight: 101.15 kg

DRUGS (2)
  1. REMICADE [Suspect]
     Indication: RHEUMATOID ARTHRITIS
     Route: 042
  2. METHOTREXATE [Concomitant]
     Indication: RHEUMATOID ARTHRITIS

REACTIONS (8)
  - DYSPNOEA [None]
  - FOOT FRACTURE [None]
  - PAIN [None]
  - PLEURAL EFFUSION [None]
  - PLEURITIC PAIN [None]
  - RIB FRACTURE [None]
  - STRESS FRACTURE [None]
  - SYSTEMIC LUPUS ERYTHEMATOSUS [None]
